FAERS Safety Report 7785181-4 (Version None)
Quarter: 2011Q3

REPORT INFORMATION
  Report Type: 
  Country: None (occurrence: None)
  Receive Date: 20110929
  Receipt Date: 20110922
  Transmission Date: 20111222
  Serious: No
  Sender: FDA-Public Use
  Company Number: US-BIOGENIDEC-2011BI036710

PATIENT
  Sex: Female

DRUGS (3)
  1. TYSABRI [Suspect]
     Route: 042
     Dates: start: 20071201, end: 20081101
  2. TYSABRI [Suspect]
     Indication: MULTIPLE SCLEROSIS
     Route: 042
     Dates: start: 20100401
  3. AMPYRA [Concomitant]
     Indication: GAIT DISTURBANCE
     Dates: start: 20100401

REACTIONS (7)
  - URINARY TRACT INFECTION [None]
  - SKIN TURGOR DECREASED [None]
  - BALANCE DISORDER [None]
  - TUNNEL VISION [None]
  - ARTHRALGIA [None]
  - GAIT DISTURBANCE [None]
  - VEIN DISORDER [None]
